FAERS Safety Report 5150669-1 (Version None)
Quarter: 2006Q4

REPORT INFORMATION
  Report Type: 
  Country: None (occurrence: None)
  Receive Date: 20061114
  Receipt Date: 20060830
  Transmission Date: 20070319
  Serious: Yes (Life-Threatening)
  Sender: FDA-Public Use
  Company Number: JP-AVENTIS-200612706JP

PATIENT
  Age: 62 Year
  Sex: Male

DRUGS (14)
  1. LASIX [Suspect]
     Indication: CARDIAC FAILURE CONGESTIVE
     Route: 048
     Dates: start: 20060720, end: 20060815
  2. LASIX [Suspect]
     Route: 048
     Dates: start: 20060817, end: 20060819
  3. LASIX [Suspect]
     Route: 048
     Dates: start: 20060820
  4. LASIX [Suspect]
     Route: 042
  5. LASIX [Suspect]
     Route: 048
  6. ANCARON [Suspect]
     Indication: ATRIAL FIBRILLATION
     Route: 048
     Dates: start: 20060817, end: 20060831
  7. GASTER D [Concomitant]
     Indication: STRESS ULCER
     Route: 048
     Dates: start: 20060817, end: 20060919
  8. MICARDIS [Concomitant]
     Indication: HYPERTENSION
     Route: 048
     Dates: start: 20060720, end: 20060815
  9. MICARDIS [Concomitant]
     Route: 048
     Dates: start: 20060817, end: 20060912
  10. WARFARIN SODIUM [Concomitant]
     Indication: HEART VALVE REPLACEMENT
     Route: 048
     Dates: start: 20060817
  11. LANIRAPID [Concomitant]
     Indication: TACHYCARDIA
     Route: 048
     Dates: start: 20060817, end: 20060822
  12. ARTIST [Concomitant]
     Indication: HYPERTENSION
     Route: 048
     Dates: start: 20060913
  13. GASMOTIN [Concomitant]
     Indication: GASTRITIS
     Dosage: FREQUENCY: AFTER MEALS
     Route: 048
     Dates: start: 20060831
  14. NORVASC [Concomitant]
     Indication: HYPERTENSION
     Route: 048
     Dates: start: 20060720, end: 20060815

REACTIONS (7)
  - CARDIAC TAMPONADE [None]
  - DRUG INEFFECTIVE [None]
  - DRUG INTERACTION [None]
  - HYPERTENSION [None]
  - MALABSORPTION [None]
  - RENAL FAILURE [None]
  - WHITE BLOOD CELL COUNT INCREASED [None]
